FAERS Safety Report 7644550-3 (Version None)
Quarter: 2011Q3

REPORT INFORMATION
  Report Type: 
  Country: None (occurrence: None)
  Receive Date: 20110725
  Receipt Date: 20110718
  Transmission Date: 20111222
  Serious: Yes (Other)
  Sender: FDA-Public Use
  Company Number: 2011SP033572

PATIENT
  Age: 30 Year
  Sex: Female

DRUGS (4)
  1. KLONOPIN [Concomitant]
  2. LITHIUM CARBONATE [Concomitant]
  3. SAPHRIS [Suspect]
     Indication: BIPOLAR I DISORDER
     Dosage: 5 MG;HS;SL ; 10 MG;BID;SL
     Route: 060
     Dates: start: 20110714
  4. SAPHRIS [Suspect]
     Indication: BIPOLAR I DISORDER
     Dosage: 5 MG;HS;SL ; 10 MG;BID;SL
     Route: 060
     Dates: start: 20110706

REACTIONS (3)
  - MANIA [None]
  - VERTIGO [None]
  - DIZZINESS [None]
